FAERS Safety Report 6581156-1 (Version None)
Quarter: 2010Q1

REPORT INFORMATION
  Report Type: 
  Country: None (occurrence: None)
  Receive Date: 20100215
  Receipt Date: 20100205
  Transmission Date: 20100710
  Serious: Yes (Death, Other)
  Sender: FDA-Public Use
  Company Number: FR-AMGEN-QUU390824

PATIENT
  Sex: Male

DRUGS (16)
  1. NEULASTA [Suspect]
     Indication: CHEMOTHERAPY
     Route: 065
     Dates: start: 20091123
  2. RITUXIMAB [Concomitant]
     Dates: start: 20091118
  3. DEXAMETHASONE [Concomitant]
     Dates: start: 20091118
  4. CYTARABINE [Concomitant]
     Dates: start: 20091118
  5. CISPLATIN [Concomitant]
     Dates: start: 20091118
  6. VINCRISTINE [Concomitant]
     Dates: start: 20100110
  7. METHOTREXATE [Concomitant]
     Dates: start: 20100110
  8. CYCLOPHOSPHAMIDE [Concomitant]
     Dates: start: 20100110
  9. DOXORUBICIN HCL [Concomitant]
     Dates: start: 20100110
  10. PREDNISONE [Concomitant]
     Dates: start: 20100110
  11. PRIMPERAN TAB [Concomitant]
  12. ACETAMINOPHEN AND CODEINE PHOSPHATE [Concomitant]
  13. OMEPRAZOLE [Concomitant]
  14. IMOVANE [Concomitant]
  15. TOPALGIC [Concomitant]
  16. DOMPERIDONE [Concomitant]

REACTIONS (21)
  - DEATH [None]
  - DISCOMFORT [None]
  - DRY MOUTH [None]
  - DYSPHAGIA [None]
  - EPILEPSY [None]
  - FEELING COLD [None]
  - FEELING OF BODY TEMPERATURE CHANGE [None]
  - GASTRIC DISORDER [None]
  - HYPOAESTHESIA [None]
  - INCREASED UPPER AIRWAY SECRETION [None]
  - MICTURITION DISORDER [None]
  - NEUTROPENIA [None]
  - REGURGITATION [None]
  - RESPIRATORY DISORDER [None]
  - RESPIRATORY DISTRESS [None]
  - SALIVARY HYPERSECRETION [None]
  - THIRST [None]
  - TREMOR [None]
  - VISION BLURRED [None]
  - VISUAL IMPAIRMENT [None]
  - VOMITING [None]
